FAERS Safety Report 6160190-X (Version None)
Quarter: 2009Q2

REPORT INFORMATION
  Report Type: 
  Country: None (occurrence: None)
  Receive Date: 20090420
  Receipt Date: 20090409
  Transmission Date: 20091009
  Serious: Yes (Hospitalization)
  Sender: FDA-Public Use
  Company Number: A0779273A

PATIENT
  Age: 48 Year
  Sex: Female

DRUGS (10)
  1. FLOVENT [Suspect]
     Indication: PRODUCTIVE COUGH
     Route: 065
     Dates: start: 20051101
  2. AVELOX [Suspect]
     Indication: PRODUCTIVE COUGH
     Dosage: 400MG UNKNOWN
     Route: 065
     Dates: start: 20051101
  3. TOPROL-XL [Suspect]
  4. METFORMIN HCL [Concomitant]
     Dosage: 500MG UNKNOWN
     Route: 048
  5. ALBUTEROL [Concomitant]
     Dosage: 4PUFF UNKNOWN
     Route: 065
  6. SINGULAIR [Concomitant]
  7. ROCEPHIN [Concomitant]
     Route: 030
     Dates: start: 20051101
  8. DEPO-MEDROL [Concomitant]
     Dates: start: 20050101
  9. DECADRON [Concomitant]
     Route: 030
     Dates: start: 20051101
  10. POTASSIUM CHLORIDE [Concomitant]

REACTIONS (17)
  - ANXIETY [None]
  - APPARENT DEATH [None]
  - ASTHENIA [None]
  - BLOOD PRESSURE INCREASED [None]
  - BURNING SENSATION [None]
  - CIRCULATORY COLLAPSE [None]
  - COLD SWEAT [None]
  - EXTRASYSTOLES [None]
  - HEART RATE INCREASED [None]
  - HYPERHIDROSIS [None]
  - IMPAIRED WORK ABILITY [None]
  - MALAISE [None]
  - NAUSEA [None]
  - PALPITATIONS [None]
  - PERFORMANCE STATUS DECREASED [None]
  - SUPRAVENTRICULAR TACHYCARDIA [None]
  - VENTRICULAR EXTRASYSTOLES [None]
